FAERS Safety Report 18732567 (Version 2)
Quarter: 2021Q1

REPORT INFORMATION
  Report Type: Report from Study
  Country: BR (occurrence: BR)
  Receive Date: 20210112
  Receipt Date: 20210119
  Transmission Date: 20210419
  Serious: Yes (Life-Threatening, Other)
  Sender: FDA-Public Use
  Company Number: BR-GILEAD-2020-0510972

PATIENT
  Age: 73 Year
  Sex: Male
  Weight: 88 kg

DRUGS (48)
  1. OLMESARTAN [Concomitant]
     Active Substance: OLMESARTAN
     Indication: HYPERTENSION
     Dosage: 20 MG, QD
     Dates: start: 2010
  2. OXYGEN. [Concomitant]
     Active Substance: OXYGEN
     Dosage: 15 L/MIN
     Route: 055
     Dates: start: 20201209, end: 20201211
  3. OXYGEN. [Concomitant]
     Active Substance: OXYGEN
     Dosage: 15 L/MIN
     Route: 055
     Dates: start: 20201212
  4. OXYGEN. [Concomitant]
     Active Substance: OXYGEN
     Dosage: 35 %
     Route: 055
     Dates: start: 20201226
  5. OXYGEN. [Concomitant]
     Active Substance: OXYGEN
     Dosage: 35 %
     Route: 055
     Dates: start: 20201225
  6. OXYGEN. [Concomitant]
     Active Substance: OXYGEN
     Dosage: 30 %
     Route: 055
     Dates: start: 20201231
  7. OXYGEN. [Concomitant]
     Active Substance: OXYGEN
     Dosage: 45 UNK
     Route: 007
     Dates: start: 20201215
  8. PLACEBO [Suspect]
     Active Substance: UNSPECIFIED INGREDIENT
     Indication: COVID-19 PNEUMONIA
     Dosage: UNK
     Route: 042
     Dates: start: 20201209
  9. OXYGEN. [Concomitant]
     Active Substance: OXYGEN
     Dosage: 100 %
     Route: 007
     Dates: start: 20201212
  10. OXYGEN. [Concomitant]
     Active Substance: OXYGEN
     Dosage: 15 L/MIN
     Route: 055
     Dates: start: 20201210
  11. OXYGEN. [Concomitant]
     Active Substance: OXYGEN
     Dosage: 30 %
     Route: 055
     Dates: start: 20201227
  12. OXYGEN. [Concomitant]
     Active Substance: OXYGEN
     Dosage: 35 %
     Route: 055
     Dates: start: 20201224
  13. OXYGEN. [Concomitant]
     Active Substance: OXYGEN
     Dosage: 30 %
     Route: 055
     Dates: start: 20210105
  14. OXYGEN. [Concomitant]
     Active Substance: OXYGEN
     Dosage: 40 UNK
     Route: 007
     Dates: start: 20201215
  15. REMDESIVIR. [Suspect]
     Active Substance: REMDESIVIR
     Dosage: 250 ML, ONCE 10 DAY TREATMENT
     Route: 042
     Dates: start: 20201209
  16. OXYGEN. [Concomitant]
     Active Substance: OXYGEN
     Dosage: 45 %
     Route: 007
     Dates: start: 20201222
  17. OXYGEN. [Concomitant]
     Active Substance: OXYGEN
     Dosage: 40 %
     Route: 055
     Dates: start: 20201224
  18. OXYGEN. [Concomitant]
     Active Substance: OXYGEN
     Dosage: 30 %
     Route: 055
     Dates: start: 20201230
  19. OXYGEN. [Concomitant]
     Active Substance: OXYGEN
     Dosage: 50 %
     Route: 007
     Dates: start: 20201217
  20. OXYGEN. [Concomitant]
     Active Substance: OXYGEN
     Dosage: 45 %
     Route: 007
     Dates: start: 20201219, end: 20201220
  21. OXYGEN. [Concomitant]
     Active Substance: OXYGEN
     Dosage: 12 L/MIN
     Route: 055
     Dates: start: 20201217
  22. OXYGEN. [Concomitant]
     Active Substance: OXYGEN
     Dosage: 35 %
     Route: 055
     Dates: start: 20201227
  23. OXYGEN. [Concomitant]
     Active Substance: OXYGEN
     Dosage: 30 %
     Route: 055
     Dates: start: 20210102
  24. OXYGEN. [Concomitant]
     Active Substance: OXYGEN
     Dosage: 30 %
     Route: 055
     Dates: start: 20201228
  25. OXYGEN. [Concomitant]
     Active Substance: OXYGEN
     Dosage: 30 %
     Route: 055
     Dates: start: 20201229
  26. OXYGEN. [Concomitant]
     Active Substance: OXYGEN
     Dosage: 45 %
     Route: 007
     Dates: start: 20201221, end: 20201222
  27. OXYGEN. [Concomitant]
     Active Substance: OXYGEN
     Dosage: 08 L/MIN
     Route: 055
     Dates: start: 20201209
  28. OXYGEN. [Concomitant]
     Active Substance: OXYGEN
     Dosage: 80 %
     Route: 007
     Dates: start: 20201214
  29. OXYGEN. [Concomitant]
     Active Substance: OXYGEN
     Dosage: 45 %
     Route: 007
     Dates: start: 20201218
  30. OXYGEN. [Concomitant]
     Active Substance: OXYGEN
     Dosage: 50 %
     Route: 007
     Dates: start: 20201218
  31. OXYGEN. [Concomitant]
     Active Substance: OXYGEN
     Dosage: 30 %
     Route: 055
     Dates: start: 20201226
  32. REMDESIVIR. [Suspect]
     Active Substance: REMDESIVIR
     Indication: COVID-19 PNEUMONIA
     Dosage: UNK, ONCE
     Route: 042
     Dates: start: 20201209
  33. OXYGEN. [Concomitant]
     Active Substance: OXYGEN
     Dosage: 45 %
     Route: 007
     Dates: start: 20201216
  34. OXYGEN. [Concomitant]
     Active Substance: OXYGEN
     Dosage: 40 %
     Route: 007
     Dates: start: 20201223
  35. OXYGEN. [Concomitant]
     Active Substance: OXYGEN
     Dosage: 80 %
     Route: 007
     Dates: start: 20201213
  36. OXYGEN. [Concomitant]
     Active Substance: OXYGEN
     Dosage: 50 %
     Route: 007
     Dates: start: 20201219
  37. OXYGEN. [Concomitant]
     Active Substance: OXYGEN
     Dosage: 07 L/MIN
     Route: 055
     Dates: start: 20201209
  38. OXYGEN. [Concomitant]
     Active Substance: OXYGEN
     Dosage: 65 %
     Route: 007
     Dates: start: 20201213
  39. OXYGEN. [Concomitant]
     Active Substance: OXYGEN
     Dosage: 35 %
     Route: 055
     Dates: start: 20201224, end: 20201227
  40. OXYGEN. [Concomitant]
     Active Substance: OXYGEN
     Dosage: 30 %
     Route: 055
     Dates: start: 20210101
  41. OXYGEN. [Concomitant]
     Active Substance: OXYGEN
     Dosage: 30 %
     Route: 055
     Dates: start: 20210104
  42. OXYGEN. [Concomitant]
     Active Substance: OXYGEN
     Dosage: 30 %
     Route: 055
     Dates: start: 20201230
  43. NORADRENALINE (NORPINEPHRINE) [Concomitant]
     Active Substance: NOREPINEPHRINE
  44. OXYGEN. [Concomitant]
     Active Substance: OXYGEN
     Dosage: 15 L/MIN
     Route: 055
     Dates: start: 20201209
  45. OXYGEN. [Concomitant]
     Active Substance: OXYGEN
     Dosage: 40 %
     Route: 007
     Dates: start: 20201214
  46. OXYGEN. [Concomitant]
     Active Substance: OXYGEN
     Dosage: 30 %
     Route: 055
     Dates: start: 20201225, end: 20210104
  47. OXYGEN. [Concomitant]
     Active Substance: OXYGEN
     Dosage: 30 %
     Route: 055
     Dates: start: 20210103
  48. OXYGEN. [Concomitant]
     Active Substance: OXYGEN
     Dosage: 30 %
     Route: 055
     Dates: start: 20210104

REACTIONS (1)
  - Pneumonia klebsiella [Recovering/Resolving]

NARRATIVE: CASE EVENT DATE: 20201222
